FAERS Safety Report 14430201 (Version 2)
Quarter: 2018Q1

REPORT INFORMATION
  Report Type: Spontaneous
  Country: GB (occurrence: GB)
  Receive Date: 20180123
  Receipt Date: 20180215
  Transmission Date: 20180509
  Serious: Yes (Hospitalization, Other)
  Sender: FDA-Public Use
  Company Number: GB-009507513-1711GBR011662

PATIENT
  Age: 89 Year
  Sex: Male

DRUGS (2)
  1. BCG LIVE [Suspect]
     Active Substance: BACILLUS CALMETTE-GUERIN SUBSTRAIN TICE LIVE ANTIGEN
     Indication: BLADDER CANCER
     Dosage: UNK, ONCE WEEKLY FOR 6 WEEKS, WITH MAINTENANCE TREATMENT EVERY 6 MONTHS
     Route: 043
     Dates: start: 201312
  2. BCG LIVE [Suspect]
     Active Substance: BACILLUS CALMETTE-GUERIN SUBSTRAIN TICE LIVE ANTIGEN
     Dosage: A FURTHER 3 INSTILLATIONS WERE GIVEN
     Route: 043
     Dates: start: 201406

REACTIONS (1)
  - Epididymitis tuberculous [Unknown]
